FAERS Safety Report 4474095-3 (Version None)
Quarter: 2004Q4

REPORT INFORMATION
  Report Type: 
  Country: None (occurrence: None)
  Receive Date: 20041014
  Receipt Date: 20040910
  Transmission Date: 20050328
  Serious: Yes (Hospitalization)
  Sender: FDA-Public Use
  Company Number: PHNU2004DE03183

PATIENT
  Sex: Female
  Weight: 57 kg

DRUGS (1)
  1. FEMARA [Suspect]
     Indication: BREAST CANCER FEMALE
     Dosage: 2.5 MG, QD
     Route: 048
     Dates: start: 20040501

REACTIONS (5)
  - CONDITION AGGRAVATED [None]
  - DERMATITIS ATOPIC [None]
  - DRY SKIN [None]
  - PRURITUS [None]
  - RASH PAPULAR [None]
